FAERS Safety Report 5677395-4 (Version None)
Quarter: 2008Q1

REPORT INFORMATION
  Report Type: 
  Country: None (occurrence: None)
  Receive Date: 20080318
  Receipt Date: 20080307
  Transmission Date: 20080703
  Serious: Yes (Death, Other)
  Sender: FDA-Public Use
  Company Number: GXKR2008DK02459

PATIENT
  Age: 37 Year
  Sex: Female
  Weight: 94 kg

DRUGS (5)
  1. CITALOPRAM              (CITALOPRAM) [Suspect]
     Indication: DEPRESSION
     Dosage: 60MG, QD, ORAL
     Route: 048
     Dates: start: 20010601
  2. QUETIAPINE FUMARATE [Suspect]
     Dosage: 50 MG,QD, ORAL
     Route: 048
  3. DELEPSINE      (VALPROATE SODIUM) GASTRO-RESISTANT TABLET [Suspect]
     Dosage: 1000 MG,QD,ORAL
     Route: 048
  4. LAMICTAL                             (LAMOTRIGINE) DISPERSIBLE TABLET [Suspect]
     Dosage: 350 MG,QD,ORAL
     Route: 048
  5. MINULET        (ETHINYLESTRADIOL, GESTODENE) COATED TABLET [Suspect]
     Indication: CONTRACEPTION
     Dosage: 1 DF,QD, ORAL
     Route: 048

REACTIONS (6)
  - DRUG INTERACTION [None]
  - DRUG TOXICITY [None]
  - ENCEPHALITIS [None]
  - OVERDOSE [None]
  - SINUS TACHYCARDIA [None]
  - THYROIDITIS [None]
